FAERS Safety Report 17002075 (Version 2)
Quarter: 2019Q4

REPORT INFORMATION
  Report Type: Report from Study
  Country: EG (occurrence: EG)
  Receive Date: 20191106
  Receipt Date: 20191119
  Transmission Date: 20200122
  Serious: Yes (Other)
  Sender: FDA-Public Use
  Company Number: NVSC2019EG025616

PATIENT
  Age: 43 Year
  Sex: Female

DRUGS (1)
  1. COSENTYX [Suspect]
     Active Substance: SECUKINUMAB
     Indication: PSORIATIC ARTHROPATHY
     Dosage: 150 MG, EVERY 15 DAYS
     Route: 058
     Dates: start: 20191014

REACTIONS (12)
  - Glossitis [Not Recovered/Not Resolved]
  - Dizziness [Not Recovered/Not Resolved]
  - Ageusia [Recovering/Resolving]
  - Hypokinesia [Recovering/Resolving]
  - Bradycardia [Not Recovered/Not Resolved]
  - Hypoxia [Not Recovered/Not Resolved]
  - Throat irritation [Recovering/Resolving]
  - Oropharyngeal pain [Not Recovered/Not Resolved]
  - Fatigue [Not Recovered/Not Resolved]
  - Oral discomfort [Recovering/Resolving]
  - Dyspnoea [Recovering/Resolving]
  - Product prescribing error [Not Recovered/Not Resolved]

NARRATIVE: CASE EVENT DATE: 20191014
